FAERS Safety Report 15156246 (Version 3)
Quarter: 2018Q3

REPORT INFORMATION
  Report Type: Report from Study
  Country: CA (occurrence: CA)
  Receive Date: 20180717
  Receipt Date: 20180913
  Transmission Date: 20181010
  Serious: Yes (Other)
  Sender: FDA-Public Use
  Company Number: CA-SHIRE-CA201825721

PATIENT

DRUGS (2)
  1. FACTOR VIII INHIBITOR BYPASSING FRACTION; BAXJECT II NF [Suspect]
     Active Substance: ANTI-INHIBITOR COAGULANT COMPLEX
     Dosage: 7500 IU, 3X A WEEK
     Route: 065
  2. FACTOR VIII INHIBITOR BYPASSING FRACTION; BAXJECT II NF [Suspect]
     Active Substance: ANTI-INHIBITOR COAGULANT COMPLEX
     Indication: FACTOR VIII DEFICIENCY
     Dosage: 7500 IU, 3X A WEEK
     Route: 065
     Dates: start: 20180404

REACTIONS (6)
  - Oedema peripheral [Recovering/Resolving]
  - Catheter site haemorrhage [Unknown]
  - Tenderness [Unknown]
  - Catheter site swelling [Unknown]
  - Catheter site pain [Unknown]
  - Haemarthrosis [Unknown]

NARRATIVE: CASE EVENT DATE: 20180906
